FAERS Safety Report 7605049-3 (Version None)
Quarter: 2011Q3

REPORT INFORMATION
  Report Type: 
  Country: None (occurrence: None)
  Receive Date: 20110713
  Receipt Date: 20081129
  Transmission Date: 20111222
  Serious: Yes (Death)
  Sender: FDA-Public Use
  Company Number: US-BAYER-200840425NA

PATIENT
  Age: 76 Year
  Sex: Female
  Weight: 60 kg

DRUGS (20)
  1. OMNIPAQUE 140 [Concomitant]
     Indication: CATHETERISATION CARDIAC
     Dosage: 125 CC
     Dates: start: 20040721
  2. TRASYLOL [Suspect]
     Indication: CORONARY ARTERY BYPASS
     Dosage: 100 CC LOADING DOSE
     Route: 042
     Dates: start: 20040726, end: 20040726
  3. ZOCOR [Concomitant]
     Dosage: 40 MG / 2 TABLETS DAILY
     Route: 048
     Dates: start: 20040721, end: 20040726
  4. VERSED [Concomitant]
     Dosage: 2 MG, UNK
     Route: 042
     Dates: start: 20040726, end: 20040726
  5. TRASYLOL [Suspect]
     Indication: ATRIAL SEPTAL DEFECT REPAIR
     Dosage: UNK, INITIAL TEST DOSE
     Route: 042
     Dates: start: 20040726, end: 20040726
  6. DOBUTAMINE HCL [Concomitant]
     Dosage: 500 MG / 250 ML
     Route: 042
     Dates: start: 20040726, end: 20040727
  7. ACETYLSALICYLIC ACID SRT [Concomitant]
     Dosage: 81 MG/24HR, UNK
     Route: 048
  8. COREG [Concomitant]
     Dosage: 6.25 MG, BID
     Route: 048
     Dates: start: 20040721, end: 20040729
  9. HEPARIN [Concomitant]
     Dosage: 1000 U, UNK
     Route: 042
     Dates: start: 20040726, end: 20040726
  10. POTASSIUM CHLORIDE [Concomitant]
     Dosage: 30 MEQ, 3 TABLETS DAILY
     Route: 048
     Dates: start: 20040721, end: 20040721
  11. PROTAMINE SULFATE [Concomitant]
     Dosage: 230 MG, UNK
     Route: 042
     Dates: start: 20040726, end: 20040726
  12. LIDOCAINE [Concomitant]
     Dosage: UNK
     Route: 042
     Dates: start: 20040726, end: 20040726
  13. FENTANYL-100 [Concomitant]
     Dosage: 500 MCG, UNK
     Route: 042
     Dates: start: 20040726, end: 20040726
  14. RED BLOOD CELLS [Concomitant]
     Dosage: 3 U, UNK
     Route: 042
     Dates: start: 20040726, end: 20040726
  15. LASIX [Concomitant]
  16. BUMETANIDE [Concomitant]
     Dosage: 1 MG/24HR, UNK
     Route: 048
     Dates: start: 20040721, end: 20040726
  17. ANCEF [Concomitant]
     Dosage: 1 G, UNK
     Route: 042
     Dates: start: 20040726, end: 20040726
  18. TRASYLOL [Suspect]
     Indication: AORTIC VALVE REPLACEMENT
     Dosage: 25 CC/HOUR
     Route: 042
     Dates: start: 20040126, end: 20040726
  19. SODIUM NITROPRUSSIDE [Concomitant]
     Dosage: 250 ML, (50 MG / 2 ML )
     Dates: start: 20040726, end: 20040727
  20. EPINEPHRINE [Concomitant]
     Dosage: UNK
     Route: 042
     Dates: start: 20040726, end: 20040726

REACTIONS (2)
  - INJURY [None]
  - RENAL FAILURE [None]
